FAERS Safety Report 9144446 (Version 4)
Quarter: 2013Q2

REPORT INFORMATION
  Report Type: Report from Study
  Country: US (occurrence: US)
  Receive Date: 20130306
  Receipt Date: 20130507
  Transmission Date: 20140414
  Serious: Yes (Hospitalization)
  Sender: FDA-Public Use
  Company Number: US-ACTELION-A-US2013-79919

PATIENT
  Age: 42 Year
  Sex: Male

DRUGS (4)
  1. VELETRI [Suspect]
     Indication: PULMONARY ARTERIAL HYPERTENSION
     Dosage: 14 NG/KG, PER MIN
     Route: 042
     Dates: start: 20130208
  2. VELETRI [Suspect]
     Dosage: 11 NG/KG, PER MIN
     Route: 042
     Dates: start: 20130207
  3. SILDENAFIL [Concomitant]
     Indication: PULMONARY ARTERIAL HYPERTENSION
  4. COUMADIN [Concomitant]

REACTIONS (9)
  - Neuropathy peripheral [Not Recovered/Not Resolved]
  - Nerve injury [Unknown]
  - Renal impairment [Unknown]
  - Dysuria [Unknown]
  - Fluid retention [Unknown]
  - Fluid overload [Unknown]
  - Oedema [Unknown]
  - Oedema peripheral [Not Recovered/Not Resolved]
  - Abdominal pain [Not Recovered/Not Resolved]
